FAERS Safety Report 9540719 (Version 1)
Quarter: 2013Q3

REPORT INFORMATION
  Report Type: Spontaneous
  Country: SG (occurrence: SG)
  Receive Date: 20130920
  Receipt Date: 20130920
  Transmission Date: 20140515
  Serious: Yes (Hospitalization)
  Sender: FDA-Public Use
  Company Number: SG-PFIZER INC-2013271499

PATIENT
  Age: 29 Year
  Sex: Female

DRUGS (1)
  1. DILANTIN [Suspect]
     Dosage: UNK
     Route: 048
     Dates: start: 20130726, end: 20130806

REACTIONS (4)
  - Thrombocytopenia [Not Recovered/Not Resolved]
  - Liver function test abnormal [Not Recovered/Not Resolved]
  - Rash [Not Recovered/Not Resolved]
  - Leukopenia [Not Recovered/Not Resolved]
